FAERS Safety Report 22601441 (Version 1)
Quarter: 2023Q2

REPORT INFORMATION
  Report Type: Report from Study
  Country: CL (occurrence: CL)
  Receive Date: 20230614
  Receipt Date: 20230614
  Transmission Date: 20230722
  Serious: Yes (Other)
  Sender: FDA-Public Use
  Company Number: CL-002147023-NVSC2023CL132902

PATIENT
  Age: 16 Year
  Sex: Male
  Weight: 45 kg

DRUGS (1)
  1. OMNITROPE [Suspect]
     Active Substance: SOMATROPIN
     Indication: Product used for unknown indication
     Dosage: 1.5 MG/10 MG/1.5 ML, QD
     Route: 058
     Dates: start: 20230327, end: 20230604

REACTIONS (3)
  - Growth retardation [Unknown]
  - Product distribution issue [Unknown]
  - Drug ineffective [Unknown]
